FAERS Safety Report 7142308-5 (Version None)
Quarter: 2010Q4

REPORT INFORMATION
  Report Type: 
  Country: None (occurrence: None)
  Receive Date: 20101112
  Receipt Date: 20100820
  Transmission Date: 20110411
  Serious: No
  Sender: FDA-Public Use
  Company Number: 1000015866

PATIENT
  Age: 48 Year
  Sex: Female

DRUGS (7)
  1. SAVELLA [Suspect]
     Indication: FIBROMYALGIA
     Dosage: ORAL; 100 MG 950 MG, 2 IN 1 D) ORAL
     Route: 048
  2. LISINOPRIL [Concomitant]
  3. TOPROL-XL [Concomitant]
  4. SIMVASTATIN [Concomitant]
  5. WELLBUTRIN [Concomitant]
  6. PROZAC [Concomitant]
  7. LASIX [Concomitant]

REACTIONS (1)
  - LIVER FUNCTION TEST ABNORMAL [None]
